FAERS Safety Report 4620299-6 (Version None)
Quarter: 2005Q1

REPORT INFORMATION
  Report Type: 
  Country: None (occurrence: None)
  Receive Date: 20050323
  Receipt Date: 20050323
  Transmission Date: 20050727
  Serious: Yes (Life-Threatening, Disabling)
  Sender: FDA-Public Use
  Company Number: None

PATIENT
  Age: 45 Year
  Sex: Male
  Weight: 72.5755 kg

DRUGS (3)
  1. LIPITOR [Suspect]
     Indication: BLOOD CHOLESTEROL
     Dosage: 1 PILL DAILY ORAL
     Route: 048
     Dates: start: 20010310, end: 20020327
  2. ALPRAZOLAM [Suspect]
     Indication: IRRITABLE BOWEL SYNDROME
     Dosage: 1/2 PILL  3X DAILY ORAL
     Route: 048
     Dates: start: 20021002, end: 20030102
  3. ALPRAZOLAM [Suspect]
     Indication: STRESS
     Dosage: 1/2 PILL  3X DAILY ORAL
     Route: 048
     Dates: start: 20021002, end: 20030102

REACTIONS (49)
  - ABDOMINAL PAIN [None]
  - ABNORMAL BEHAVIOUR [None]
  - AFFECT LABILITY [None]
  - AGITATION [None]
  - ALOPECIA [None]
  - ASTHENIA [None]
  - CHILLS [None]
  - CLAUSTROPHOBIA [None]
  - CONSTIPATION [None]
  - CONVULSION [None]
  - CRYING [None]
  - DERMATITIS EXFOLIATIVE [None]
  - DIFFICULTY IN WALKING [None]
  - DRUG WITHDRAWAL SYNDROME [None]
  - ECONOMIC PROBLEM [None]
  - FEAR [None]
  - FEELING ABNORMAL [None]
  - FEELING HOT [None]
  - GINGIVAL PAIN [None]
  - GINGIVAL RECESSION [None]
  - HAIR COLOUR CHANGES [None]
  - HAIR TEXTURE ABNORMAL [None]
  - HYPERAESTHESIA [None]
  - HYPERHIDROSIS [None]
  - HYPERREFLEXIA [None]
  - HYPOAESTHESIA [None]
  - INSOMNIA [None]
  - IRRITABLE BOWEL SYNDROME [None]
  - MALAISE [None]
  - MOANING [None]
  - NAUSEA [None]
  - PAIN [None]
  - PARAESTHESIA [None]
  - PAROSMIA [None]
  - PHOTOSENSITIVITY REACTION [None]
  - RASH [None]
  - RELATIONSHIP BREAKDOWN [None]
  - RHABDOMYOLYSIS [None]
  - SKIN ATROPHY [None]
  - SKIN ULCER HAEMORRHAGE [None]
  - SKIN WRINKLING [None]
  - STRESS [None]
  - TOOTH DISORDER [None]
  - TOOTHACHE [None]
  - TREMOR [None]
  - URTICARIA [None]
  - VERTIGO [None]
  - VITAMIN C DEFICIENCY [None]
  - VOMITING [None]
